FAERS Safety Report 20979856 (Version 3)
Quarter: 2022Q4

REPORT INFORMATION
  Report Type: Report from Study
  Country: US (occurrence: US)
  Receive Date: 20220620
  Receipt Date: 20221026
  Transmission Date: 20230112
  Serious: Yes (Other)
  Sender: FDA-Public Use
  Company Number: US-ABBVIE-22K-163-4438720-00

PATIENT
  Age: 49 Year
  Sex: Female

DRUGS (2)
  1. HUMIRA [Suspect]
     Active Substance: ADALIMUMAB
     Indication: Hidradenitis
     Route: 058
  2. HUMIRA [Suspect]
     Active Substance: ADALIMUMAB

REACTIONS (6)
  - Systemic lupus erythematosus [Unknown]
  - Rotator cuff syndrome [Unknown]
  - Pruritus [Unknown]
  - Application site pruritus [Unknown]
  - Dermatitis contact [Unknown]
  - Pain [Unknown]

NARRATIVE: CASE EVENT DATE: 20220720
